FAERS Safety Report 4661855-9 (Version None)
Quarter: 2005Q2

REPORT INFORMATION
  Report Type: 
  Country: None (occurrence: None)
  Receive Date: 20050513
  Receipt Date: 20040929
  Transmission Date: 20051028
  Serious: Yes (Death, Hospitalization, Other)
  Sender: FDA-Public Use
  Company Number: IT-ABBOTT-04P-083-0275777-00

PATIENT
  Sex: Male
  Weight: 95 kg

DRUGS (18)
  1. HUMIRA [Suspect]
     Indication: RHEUMATOID ARTHRITIS
     Route: 058
     Dates: start: 20030523, end: 20040720
  2. SULFASALAZINE [Concomitant]
     Indication: RHEUMATOID ARTHRITIS
     Route: 048
     Dates: start: 19990701, end: 20000701
  3. HYDROXYCHLOROQUINE PHOSPHATE [Concomitant]
     Indication: RHEUMATOID ARTHRITIS
     Route: 048
     Dates: start: 20000801, end: 20011201
  4. METHOTREXATE [Concomitant]
     Indication: RHEUMATOID ARTHRITIS
     Route: 030
     Dates: start: 20001001, end: 20011201
  5. METHOTREXATE [Concomitant]
     Route: 030
     Dates: start: 20020601, end: 20030515
  6. LEFLUNOMIDE [Concomitant]
     Indication: RHEUMATOID ARTHRITIS
     Route: 048
     Dates: start: 20011201, end: 20011201
  7. LEFLUNOMIDE [Concomitant]
     Route: 048
     Dates: start: 20011201, end: 20020601
  8. CELECOXIB [Concomitant]
     Indication: RHEUMATOID ARTHRITIS
     Route: 048
     Dates: start: 20000801, end: 20040921
  9. METHYLPREDNISOLONE [Concomitant]
     Indication: RHEUMATOID ARTHRITIS
     Route: 048
     Dates: start: 20030515, end: 20031009
  10. METHYLPREDNISOLONE [Concomitant]
     Route: 048
     Dates: start: 20031010, end: 20031209
  11. METHYLPREDNISOLONE [Concomitant]
     Route: 048
     Dates: start: 20031210, end: 20040129
  12. METHYLPREDNISOLONE [Concomitant]
     Route: 048
     Dates: start: 20040130, end: 20040526
  13. METHYLPREDNISOLONE [Concomitant]
     Route: 048
     Dates: start: 20040525, end: 20040720
  14. METHYLPREDNISOLONE [Concomitant]
     Route: 048
     Dates: start: 20040721, end: 20040921
  15. COLCHICINE [Concomitant]
     Indication: INTERSTITIAL LUNG DISEASE
     Route: 048
     Dates: start: 20030515, end: 20040921
  16. RABEPRAZOLE SODIUM [Concomitant]
     Indication: PROPHYLAXIS AGAINST GASTROINTESTINAL ULCER
     Route: 048
     Dates: start: 20030515, end: 20040921
  17. AMOXICILLIN TRIHYDRATE [Concomitant]
     Indication: BRONCHITIS
     Route: 048
     Dates: start: 20040324, end: 20040401
  18. COMMERCIAL HUMIRA [Concomitant]
     Indication: RHEUMATOID ARTHRITIS
     Route: 058
     Dates: start: 20040801

REACTIONS (4)
  - BRONCHOPNEUMONIA [None]
  - IMPLANT SITE INFECTION [None]
  - PYREXIA [None]
  - SKIN ULCER [None]
